FAERS Safety Report 17053961 (Version 1)
Quarter: 2019Q4

REPORT INFORMATION
  Report Type: Spontaneous
  Country: US (occurrence: US)
  Receive Date: 20191022
  Receipt Date: 20191022
  Transmission Date: 20200122
  Serious: Yes (Hospitalization)
  Sender: FDA-Public Use
  Company Number: None

PATIENT
  Age: 44 Year
  Sex: Male

DRUGS (1)
  1. HUMIRA [Suspect]
     Active Substance: ADALIMUMAB
     Indication: PSORIASIS
     Dosage: ?          OTHER DOSE:40/0.4 MG/ML;?
     Route: 058
     Dates: start: 20190425

REACTIONS (4)
  - Insurance issue [None]
  - Gastric bypass [None]
  - Economic problem [None]
  - Therapy cessation [None]

NARRATIVE: CASE EVENT DATE: 20190915
